FAERS Safety Report 22793900 (Version 4)
Quarter: 2024Q1

REPORT INFORMATION
  Report Type: Spontaneous
  Country: US (occurrence: US)
  Receive Date: 20230807
  Receipt Date: 20240215
  Transmission Date: 20240410
  Serious: No
  Sender: FDA-Public Use
  Company Number: US-BIOGEN-2023BI01219534

PATIENT
  Sex: Female

DRUGS (1)
  1. TYSABRI [Suspect]
     Active Substance: NATALIZUMAB
     Indication: Multiple sclerosis
     Route: 050
     Dates: start: 20090130

REACTIONS (5)
  - Product dose omission issue [Unknown]
  - Multiple sclerosis [Unknown]
  - Memory impairment [Unknown]
  - Visual acuity reduced [Unknown]
  - Fatigue [Unknown]
